FAERS Safety Report 11353598 (Version 1)
Quarter: 2015Q3

REPORT INFORMATION
  Report Type: Spontaneous
  Country: US (occurrence: US)
  Receive Date: 20150807
  Receipt Date: 20150807
  Transmission Date: 20151125
  Serious: No
  Sender: FDA-Public Use
  Company Number: US-JNJFOC-20150111787

PATIENT
  Age: 57 Year
  Sex: Female
  Weight: 49.9 kg

DRUGS (5)
  1. BIOTIN [Concomitant]
     Active Substance: BIOTIN
     Indication: HAIR DISORDER
     Dosage: INTERVAL - 3 YEARS
     Route: 065
  2. VIVISCAL HAIR SUPPLEMENT [Concomitant]
     Indication: HAIR DISORDER
     Dosage: INTERVAL - 1 MONTH
     Route: 065
  3. WOMENS ROGAINE UNSCENTED [Suspect]
     Active Substance: MINOXIDIL
     Route: 061
  4. WOMENS ROGAINE UNSCENTED [Suspect]
     Active Substance: MINOXIDIL
     Indication: HAIR GROWTH ABNORMAL
     Dosage: 1/2 CAPFUL OR MORE
     Route: 061
  5. BIOTIN [Concomitant]
     Active Substance: BIOTIN
     Indication: NAIL DISORDER
     Dosage: INTERVAL - 3 YEARS
     Route: 065

REACTIONS (3)
  - Hair texture abnormal [Recovered/Resolved]
  - Product use issue [Unknown]
  - Product quality issue [Unknown]
